FAERS Safety Report 5000408-X (Version None)
Quarter: 2006Q2

REPORT INFORMATION
  Report Type: 
  Country: None (occurrence: None)
  Receive Date: 20060511
  Receipt Date: 20050523
  Transmission Date: 20061013
  Serious: Yes (Hospitalization, Disabling, Other)
  Sender: FDA-Public Use
  Company Number: US-MERCK-0505USA02952

PATIENT
  Age: 61 Year
  Sex: Female
  Weight: 55 kg

DRUGS (5)
  1. VIOXX [Suspect]
     Indication: RHEUMATOID ARTHRITIS
     Route: 048
     Dates: start: 20000313, end: 20020501
  2. METHOTREXATE [Concomitant]
     Route: 065
  3. ENBREL [Concomitant]
     Route: 065
  4. PREDNISONE [Concomitant]
     Route: 065
  5. DARVOCET-N 100 [Concomitant]
     Route: 065

REACTIONS (6)
  - ANAEMIA OF CHRONIC DISEASE [None]
  - CEREBROVASCULAR ACCIDENT [None]
  - GASTROOESOPHAGEAL REFLUX DISEASE [None]
  - HEMIPARESIS [None]
  - HYPERTENSION [None]
  - RENAL FAILURE CHRONIC [None]
